FAERS Safety Report 25623823 (Version 1)
Quarter: 2025Q3

REPORT INFORMATION
  Report Type: Spontaneous
  Country: EU (occurrence: EU)
  Receive Date: 20250730
  Receipt Date: 20250730
  Transmission Date: 20251021
  Serious: Yes (Death, Other)
  Sender: BAUSCH AND LOMB
  Company Number: None

PATIENT
  Sex: Male
  Weight: 134 kg

DRUGS (3)
  1. AZATHIOPRINE [Suspect]
     Active Substance: AZATHIOPRINE
     Indication: Myasthenia gravis
     Route: 048
     Dates: start: 202404
  2. AZATHIOPRINE [Suspect]
     Active Substance: AZATHIOPRINE
     Route: 048
  3. ZILBRYSQ [Suspect]
     Active Substance: ZILUCOPLAN
     Indication: Myasthenia gravis
     Route: 058
     Dates: start: 202505

REACTIONS (5)
  - Hepatic failure [Fatal]
  - Pancytopenia [Fatal]
  - Pulmonary sepsis [Fatal]
  - Septic shock [Fatal]
  - Treatment noncompliance [Unknown]
